FAERS Safety Report 18231837 (Version 1)
Quarter: 2020Q3

REPORT INFORMATION
  Report Type: Spontaneous
  Country: ES (occurrence: ES)
  Receive Date: 20200904
  Receipt Date: 20200904
  Transmission Date: 20201103
  Serious: Yes (Other)
  Sender: FDA-Public Use
  Company Number: ES-ACCORD-198988

PATIENT
  Age: 73 Year
  Sex: Female
  Weight: 63 kg

DRUGS (1)
  1. DOCETAXEL ACCORD [Suspect]
     Active Substance: DOCETAXEL
     Indication: BREAST NEOPLASM
     Dosage: STRENGTH: 160 MG/8 ML, 1 VIAL OF 8 ML
     Route: 041
     Dates: start: 20200807, end: 20200807

REACTIONS (3)
  - Dizziness [Recovered/Resolved]
  - Headache [Recovered/Resolved]
  - Feeling hot [Recovered/Resolved]

NARRATIVE: CASE EVENT DATE: 20200807
